FAERS Safety Report 4864563-4 (Version None)
Quarter: 2005Q4

REPORT INFORMATION
  Report Type: 
  Country: None (occurrence: None)
  Receive Date: 20051222
  Receipt Date: 20051215
  Transmission Date: 20060501
  Serious: Yes (Death, Hospitalization)
  Sender: FDA-Public Use
  Company Number: PHBS2005US18634

PATIENT
  Age: 64 Year
  Sex: Male

DRUGS (1)
  1. IMATINIB [Suspect]
     Indication: CHRONIC MYELOID LEUKAEMIA
     Route: 065

REACTIONS (20)
  - ACUTE MYELOMONOCYTIC LEUKAEMIA [None]
  - BLAST CELLS PRESENT [None]
  - BLAST CRISIS IN MYELOGENOUS LEUKAEMIA [None]
  - BLOOD CREATININE INCREASED [None]
  - BLOOD LACTATE DEHYDROGENASE INCREASED [None]
  - BLOOD UREA INCREASED [None]
  - COLLAPSE OF LUNG [None]
  - DYSPNOEA [None]
  - EOSINOPHIL COUNT INCREASED [None]
  - GRAFT VERSUS HOST DISEASE [None]
  - LEUKAEMIC INFILTRATION PULMONARY [None]
  - LYMPHADENOPATHY MEDIASTINAL [None]
  - MARROW HYPERPLASIA [None]
  - MONOCYTE COUNT INCREASED [None]
  - MULTI-ORGAN FAILURE [None]
  - PNEUMONIA CYTOMEGALOVIRAL [None]
  - RENAL FAILURE [None]
  - SPLENOMEGALY [None]
  - STEM CELL TRANSPLANT [None]
  - WHITE BLOOD CELL COUNT INCREASED [None]
